FAERS Safety Report 14745476 (Version 2)
Quarter: 2018Q2

REPORT INFORMATION
  Report Type: Spontaneous
  Country: JP (occurrence: JP)
  Receive Date: 20180411
  Receipt Date: 20180604
  Transmission Date: 20180711
  Serious: Yes (Other)
  Sender: FDA-Public Use
  Company Number: JP-BRISTOL-MYERS SQUIBB COMPANY-BMS-2018-031926

PATIENT
  Age: 83 Year
  Sex: Female
  Weight: 46.3 kg

DRUGS (1)
  1. ELIQUIS [Suspect]
     Active Substance: APIXABAN
     Indication: CEREBROVASCULAR ACCIDENT PROPHYLAXIS
     Dosage: 5 MG, BID
     Route: 048
     Dates: start: 20141211, end: 20180305

REACTIONS (7)
  - Gingival recession [Recovered/Resolved]
  - Gingival pain [Recovering/Resolving]
  - Osteoporosis [Not Recovered/Not Resolved]
  - Gingival swelling [Recovering/Resolving]
  - Hypophagia [Unknown]
  - Dysgeusia [Unknown]
  - Metabolic disorder [Not Recovered/Not Resolved]

NARRATIVE: CASE EVENT DATE: 20160908
